FAERS Safety Report 9375608 (Version 3)
Quarter: 2014Q3

REPORT INFORMATION
  Report Type: Spontaneous
  Country: US (occurrence: US)
  Receive Date: 20130628
  Receipt Date: 20140919
  Transmission Date: 20150326
  Serious: Yes (Hospitalization, Other)
  Sender: FDA-Public Use
  Company Number: US-009507513-1306USA013111

PATIENT
  Sex: Female

DRUGS (1)
  1. NUVARING [Suspect]
     Active Substance: ETHINYL ESTRADIOL\ETONOGESTREL
     Indication: CONTRACEPTION
     Dosage: UNK
     Route: 067
     Dates: start: 2009

REACTIONS (15)
  - Pulmonary embolism [Unknown]
  - Pyrexia [Recovering/Resolving]
  - Limb injury [Unknown]
  - Urticaria [Unknown]
  - Nausea [Unknown]
  - Pain in jaw [Unknown]
  - Obesity [Unknown]
  - Dyspnoea [Recovered/Resolved]
  - Deep vein thrombosis [Unknown]
  - Rash maculo-papular [Unknown]
  - Musculoskeletal pain [Recovered/Resolved]
  - Cholecystectomy [Unknown]
  - Leukocytosis [Recovering/Resolving]
  - Neck pain [Unknown]
  - Myalgia [Unknown]

NARRATIVE: CASE EVENT DATE: 200906
